FAERS Safety Report 9416325 (Version 1)
Quarter: 2013Q3

REPORT INFORMATION
  Report Type: Spontaneous
  Country: AU (occurrence: None)
  Receive Date: 20130719
  Receipt Date: 20130719
  Transmission Date: 20140520
  Serious: Yes (Hospitalization)
  Sender: FDA-Public Use
  Company Number: 1793415

PATIENT
  Age: 68 Year
  Sex: Male

DRUGS (15)
  1. IRINOTECAN HYDROCHLORIDE [Suspect]
     Indication: COLORECTAL CANCER METASTATIC
     Route: 040
     Dates: start: 20121206
  2. CALCIUM FOLINATE [Suspect]
     Indication: COLORECTAL CANCER METASTATIC
     Route: 042
     Dates: start: 20121206
  3. FLUOROURACIL [Concomitant]
  4. FLUOROURACIL [Concomitant]
  5. BEVACIZUMAB [Concomitant]
  6. LERCANIDIPINE HYDROCHLORIDE [Concomitant]
  7. ASPIRIN [Concomitant]
  8. CELECOXIB [Concomitant]
  9. NALOXONE HCL W/OXYCODONE HCL [Concomitant]
  10. EZETIMIBE [Concomitant]
  11. PEG 3350 AND ELECTROLYTES [Concomitant]
  12. INDAPAMIDE W/ PERINDOPRIL [Concomitant]
  13. BUDESONIDE W/ FORMOTEROL FUMARATE [Concomitant]
  14. CLOPIDOGREL BISULFATE [Concomitant]
  15. NICORANDIL [Concomitant]

REACTIONS (6)
  - Urinary incontinence [None]
  - Nausea [None]
  - Vomiting [None]
  - Dehydration [None]
  - Diarrhoea [None]
  - Muscular weakness [None]
